FAERS Safety Report 5112734-4 (Version None)
Quarter: 2006Q3

REPORT INFORMATION
  Report Type: 
  Country: None (occurrence: None)
  Receive Date: 20060922
  Receipt Date: 20060911
  Transmission Date: 20061208
  Serious: Yes (Other)
  Sender: FDA-Public Use
  Company Number: PHFR2006GB02816

PATIENT
  Sex: Male

DRUGS (2)
  1. PREGABALIN [Concomitant]
     Route: 065
  2. ZELMAC [Suspect]
     Indication: ABDOMINAL PAIN
     Route: 065

REACTIONS (6)
  - ABDOMINAL PAIN LOWER [None]
  - DIARRHOEA [None]
  - DIZZINESS [None]
  - HEADACHE [None]
  - MUSCLE SPASMS [None]
  - SOMNOLENCE [None]
